FAERS Safety Report 11830320 (Version 4)
Quarter: 2016Q3

REPORT INFORMATION
  Report Type: Spontaneous
  Country: US (occurrence: US)
  Receive Date: 20151214
  Receipt Date: 20160907
  Transmission Date: 20161109
  Serious: Yes (Other)
  Sender: FDA-Public Use
  Company Number: US-JNJFOC-20151115092

PATIENT
  Age: 49 Year
  Sex: Male
  Weight: 70.31 kg

DRUGS (12)
  1. LEVAQUIN [Suspect]
     Active Substance: LEVOFLOXACIN
     Indication: RENAL STONE REMOVAL
     Route: 048
     Dates: start: 20040401, end: 200404
  2. LEVAQUIN [Suspect]
     Active Substance: LEVOFLOXACIN
     Indication: RENAL STONE REMOVAL
     Route: 048
     Dates: start: 20040304, end: 200403
  3. LEVAQUIN [Suspect]
     Active Substance: LEVOFLOXACIN
     Indication: NEPHROLITHIASIS
     Route: 048
     Dates: start: 20040104, end: 2004
  4. LEVAQUIN [Suspect]
     Active Substance: LEVOFLOXACIN
     Indication: RENAL STONE REMOVAL
     Route: 048
     Dates: start: 20090520
  5. LEVAQUIN [Suspect]
     Active Substance: LEVOFLOXACIN
     Indication: RENAL STONE REMOVAL
     Route: 048
     Dates: start: 20101208
  6. LEVAQUIN [Suspect]
     Active Substance: LEVOFLOXACIN
     Indication: NEPHROLITHIASIS
     Route: 048
     Dates: start: 20040401, end: 200404
  7. LEVAQUIN [Suspect]
     Active Substance: LEVOFLOXACIN
     Indication: NEPHROLITHIASIS
     Route: 048
     Dates: start: 20040304, end: 200403
  8. LEVAQUIN [Suspect]
     Active Substance: LEVOFLOXACIN
     Indication: NEPHROLITHIASIS
     Route: 048
     Dates: start: 20090520
  9. LEVAQUIN [Suspect]
     Active Substance: LEVOFLOXACIN
     Indication: NEPHROLITHIASIS
     Route: 048
     Dates: start: 20101208
  10. LEVAQUIN [Suspect]
     Active Substance: LEVOFLOXACIN
     Indication: NEPHROLITHIASIS
     Route: 048
     Dates: start: 20040318, end: 2004
  11. LEVAQUIN [Suspect]
     Active Substance: LEVOFLOXACIN
     Indication: RENAL STONE REMOVAL
     Route: 048
     Dates: start: 20040104, end: 2004
  12. LEVAQUIN [Suspect]
     Active Substance: LEVOFLOXACIN
     Indication: RENAL STONE REMOVAL
     Route: 048
     Dates: start: 20040318, end: 2004

REACTIONS (2)
  - Musculoskeletal injury [Not Recovered/Not Resolved]
  - Neuropathy peripheral [Not Recovered/Not Resolved]

NARRATIVE: CASE EVENT DATE: 201012
